FAERS Safety Report 15055180 (Version 1)
Quarter: 2018Q2

REPORT INFORMATION
  Report Type: Spontaneous
  Country: GB (occurrence: GB)
  Receive Date: 20180622
  Receipt Date: 20180622
  Transmission Date: 20180711
  Serious: Yes (Death, Hospitalization)
  Sender: FDA-Public Use
  Company Number: GB-ALLERGAN-1831849US

PATIENT
  Age: 88 Year
  Weight: 80 kg

DRUGS (3)
  1. ACETYLSALICYLIC ACID [Suspect]
     Active Substance: ASPIRIN
     Indication: PRODUCT USED FOR UNKNOWN INDICATION
     Dosage: 75 MG, QD
     Route: 048
     Dates: end: 20180519
  2. DIHYDROCODEINE [Concomitant]
     Active Substance: DIHYDROCODEINE
     Indication: BACK PAIN
     Dosage: 120 MG
     Route: 048
  3. ESCITALOPRAM OXALATE - BP [Suspect]
     Active Substance: ESCITALOPRAM OXALATE
     Indication: DEPRESSION
     Dosage: 20 MG, QD
     Route: 048
     Dates: end: 20180519

REACTIONS (4)
  - Gastric ulcer [Not Recovered/Not Resolved]
  - Drug administered to patient of inappropriate age [Unknown]
  - Gastrointestinal haemorrhage [Fatal]
  - Gastrointestinal pain [Unknown]

NARRATIVE: CASE EVENT DATE: 201805
